FAERS Safety Report 7445304-3 (Version None)
Quarter: 2011Q2

REPORT INFORMATION
  Report Type: 
  Country: None (occurrence: None)
  Receive Date: 20110429
  Receipt Date: 20110414
  Transmission Date: 20111010
  Serious: Yes (Hospitalization, Disabling)
  Sender: FDA-Public Use
  Company Number: FR-AMGEN-QUU429344

PATIENT
  Age: 78 Year
  Sex: Female

DRUGS (5)
  1. ADALIMUMAB [Suspect]
     Indication: PSORIASIS
     Dosage: 80 MG, UNK
     Route: 058
     Dates: start: 20100421, end: 20100421
  2. ADALIMUMAB [Suspect]
     Indication: PSORIATIC ARTHROPATHY
  3. CORTICOSTEROID NOS [Suspect]
     Dosage: UNK UNK, UNK
     Dates: start: 20090901
  4. ENBREL [Suspect]
     Indication: PSORIASIS
     Dosage: 50 MG, QWK
     Route: 058
     Dates: start: 20010101, end: 20090101
  5. ENBREL [Suspect]
     Indication: PSORIATIC ARTHROPATHY
     Dosage: 100 MG, QWK
     Route: 058
     Dates: start: 20090101, end: 20100407

REACTIONS (9)
  - ECZEMA [None]
  - PAIN [None]
  - DRUG INEFFECTIVE [None]
  - CUTANEOUS VASCULITIS [None]
  - PYREXIA [None]
  - DERMATITIS PSORIASIFORM [None]
  - DERMATITIS EXFOLIATIVE [None]
  - DERMATITIS ALLERGIC [None]
  - EOSINOPHILIA [None]
